FAERS Safety Report 12486136 (Version 1)
Quarter: 2016Q2

REPORT INFORMATION
  Report Type: Spontaneous
  Country: JP (occurrence: JP)
  Receive Date: 20160621
  Receipt Date: 20160621
  Transmission Date: 20160815
  Serious: Yes (Hospitalization, Disabling, Other)
  Sender: FDA-Public Use
  Company Number: JP-ELI_LILLY_AND_COMPANY-JP201606006620

PATIENT
  Age: 70 Year
  Sex: Male

DRUGS (5)
  1. ZALUTIA [Suspect]
     Active Substance: TADALAFIL
     Indication: BENIGN PROSTATIC HYPERPLASIA
     Dosage: 5 MG, QD
     Route: 048
     Dates: start: 20151202, end: 20160606
  2. PARIET [Concomitant]
     Active Substance: RABEPRAZOLE SODIUM
  3. BAYASPIRIN [Suspect]
     Active Substance: ASPIRIN
     Indication: PRODUCT USED FOR UNKNOWN INDICATION
     Route: 065
  4. FLIVAS [Concomitant]
     Active Substance: NAFTOPIDIL
     Dosage: UNK
  5. LIPITOR [Concomitant]
     Active Substance: ATORVASTATIN CALCIUM

REACTIONS (2)
  - Hydrocephalus [Unknown]
  - Haemorrhagic cerebral infarction [Recovering/Resolving]

NARRATIVE: CASE EVENT DATE: 201606
